FAERS Safety Report 12260127 (Version 1)
Quarter: 2016Q2

REPORT INFORMATION
  Report Type: Spontaneous
  Country: US (occurrence: US)
  Receive Date: 20160412
  Receipt Date: 20160412
  Transmission Date: 20160815
  Serious: No
  Sender: FDA-Public Use
  Company Number: US-SA-2015SA151533

PATIENT
  Age: 83 Year
  Sex: Female

DRUGS (1)
  1. ALLEGRA ALLERGY [Suspect]
     Active Substance: FEXOFENADINE HYDROCHLORIDE
     Indication: MULTIPLE ALLERGIES
     Dosage: STARTED 2 WEEKS AGO?FREQUENCY: QAM (EVERY MORNING)
     Route: 048
     Dates: end: 20150929

REACTIONS (3)
  - Drug ineffective [Unknown]
  - Tongue dry [Not Recovered/Not Resolved]
  - Nasal disorder [Not Recovered/Not Resolved]
